FAERS Safety Report 8602718-3 (Version None)
Quarter: 2012Q3

REPORT INFORMATION
  Report Type: 
  Country: None (occurrence: None)
  Receive Date: 20120817
  Receipt Date: 20120803
  Transmission Date: 20120928
  Serious: Yes (Other)
  Sender: FDA-Public Use
  Company Number: ES-WATSON-2012-14046

PATIENT
  Age: 34 Year
  Sex: Female

DRUGS (2)
  1. SERTRALINE HYDROCHLORIDE [Suspect]
     Indication: DEPRESSION
     Dosage: 200 MG, DAILY
     Route: 065
  2. SERTRALINE HYDROCHLORIDE [Suspect]
     Dosage: 100 MG, DAILY
     Route: 065

REACTIONS (1)
  - EOSINOPHILIC PNEUMONIA [None]
